FAERS Safety Report 10347465 (Version 2)
Quarter: 2014Q3

REPORT INFORMATION
  Report Type: Report from Study
  Country: JP (occurrence: JP)
  Receive Date: 20140729
  Receipt Date: 20140829
  Transmission Date: 20150326
  Serious: Yes (Other)
  Sender: FDA-Public Use
  Company Number: JP-OTSUKA-JP-2014-15946

PATIENT

DRUGS (40)
  1. LASIX M [Concomitant]
     Active Substance: FUROSEMIDE
     Dosage: 400 MG MILLIGRAM(S), DAILY DOSE
     Route: 041
     Dates: start: 20140616, end: 20140617
  2. FUROSEMIDE. [Concomitant]
     Active Substance: FUROSEMIDE
     Indication: CARDIAC FAILURE
     Dosage: 20 MG MILLIGRAM(S), DAILY DOSE
     Route: 048
  3. NICARDIPINE HYDROCHLORIDE. [Concomitant]
     Active Substance: NICARDIPINE HYDROCHLORIDE
     Dosage: 10 DF DOSAGE FORM, DAILY DOSE
     Route: 041
     Dates: start: 20140619, end: 20140619
  4. NICARDIPINE HYDROCHLORIDE. [Concomitant]
     Active Substance: NICARDIPINE HYDROCHLORIDE
     Dosage: 4 DF DOSAGE FORM, DAILY DOSE
     Route: 041
     Dates: start: 20140620, end: 20140621
  5. HEPARIN NA LOCK [Concomitant]
     Dosage: 20 IU, DAILY DOSE
     Route: 042
     Dates: start: 20140619, end: 20140620
  6. HEPARIN NA LOCK [Concomitant]
     Dosage: 120 IU, DAILY DOSE
     Route: 042
     Dates: start: 20140621, end: 20140621
  7. GLUCOSE [Concomitant]
     Active Substance: DEXTROSE
     Indication: CARDIAC FAILURE
     Dosage: 2 DF DOSAGE FORM, DAILY DOSE
     Route: 042
     Dates: start: 20140619, end: 20140619
  8. SALTNIN [Concomitant]
     Indication: PROPHYLAXIS
     Dosage: 20 ML MILLILITRE(S), DAILY DOSE
     Route: 041
     Dates: start: 20140619, end: 20140621
  9. ROCEPHIN [Concomitant]
     Active Substance: CEFTRIAXONE SODIUM
     Indication: PROPHYLAXIS
     Dosage: 1 G GRAM(S), DAILY DOSE
     Route: 041
     Dates: end: 20140621
  10. MAGLAX [Concomitant]
     Active Substance: MAGNESIUM OXIDE
     Indication: PRODUCT USED FOR UNKNOWN INDICATION
     Dosage: 660 MG MILLIGRAM(S), DAILY DOSE
     Route: 048
  11. NICARDIPINE HYDROCHLORIDE. [Concomitant]
     Active Substance: NICARDIPINE HYDROCHLORIDE
     Dosage: 6 DF DOSAGE FORM, DAILY DOSE
     Route: 041
     Dates: start: 20140617, end: 20140617
  12. NICARDIPINE HYDROCHLORIDE. [Concomitant]
     Active Substance: NICARDIPINE HYDROCHLORIDE
     Dosage: 8 DF DOSAGE FORM, DAILY DOSE
     Route: 041
     Dates: start: 20140622, end: 20140622
  13. MANNIGEN [Concomitant]
     Active Substance: MANNITOL
     Dosage: 240 ML MILLILITRE(S), DAILY DOSE
     Route: 041
     Dates: start: 20140616, end: 20140616
  14. LASIX M [Concomitant]
     Active Substance: FUROSEMIDE
     Indication: CARDIAC FAILURE
     Dosage: 20 MG MILLIGRAM(S), DAILY DOSE
     Route: 041
     Dates: end: 20140614
  15. PLAVIX [Concomitant]
     Active Substance: CLOPIDOGREL BISULFATE
     Indication: PRODUCT USED FOR UNKNOWN INDICATION
     Dosage: 75 MG MILLIGRAM(S), DAILY DOSE
     Route: 048
  16. CARDENALIN [Concomitant]
     Active Substance: DOXAZOSIN MESYLATE
     Indication: PRODUCT USED FOR UNKNOWN INDICATION
     Dosage: 2 MG MILLIGRAM(S), DAILY DOSE
     Route: 048
  17. HANP [Concomitant]
     Active Substance: CARPERITIDE
     Dosage: 4000 MCG, DAILY DOSE
     Route: 041
     Dates: start: 20140616, end: 20140616
  18. GLUCOSE [Concomitant]
     Active Substance: DEXTROSE
     Dosage: 80 ML MILLILITRE(S), DAILY DOSE
     Route: 041
     Dates: start: 20140615, end: 20140615
  19. NICARDIPINE HYDROCHLORIDE. [Concomitant]
     Active Substance: NICARDIPINE HYDROCHLORIDE
     Dosage: 250 MG MILLIGRAM(S), DAILY DOSE
     Route: 041
     Dates: start: 20140618, end: 20140618
  20. HEPARIN NA LOCK [Concomitant]
     Indication: PROPHYLAXIS
     Dosage: 20 IU, DAILY DOSE
     Route: 042
     Dates: start: 20140617, end: 20140617
  21. HANP [Concomitant]
     Active Substance: CARPERITIDE
     Indication: CARDIAC FAILURE
     Dosage: 4000 MCG, DAILY DOSE
     Route: 041
     Dates: start: 20140614, end: 20140614
  22. GLUCOSE [Concomitant]
     Active Substance: DEXTROSE
     Dosage: 80 ML MILLILITRE(S), DAILY DOSE
     Route: 041
     Dates: start: 20140617, end: 20140617
  23. ELEMENMIC [Concomitant]
     Active Substance: CUPRIC SULFATE\FERRIC CHLORIDE\MANGANESE CHLORIDE\POTASSIUM IODIDE\ZINC SULFATE
     Indication: VITAMIN SUPPLEMENTATION
     Dosage: 2 ML MILLILITRE(S), DAILY DOSE
     Route: 042
     Dates: start: 20140617, end: 20140621
  24. SAMSCA [Suspect]
     Active Substance: TOLVAPTAN
     Indication: OEDEMA DUE TO CARDIAC DISEASE
     Dosage: 7.5 MG MILLIGRAM(S), QAM
     Route: 048
     Dates: start: 20140614, end: 20140627
  25. LASIX M [Concomitant]
     Active Substance: FUROSEMIDE
     Dosage: 200 MG MILLIGRAM(S), DAILY DOSE
     Route: 041
     Dates: start: 20140618, end: 20140621
  26. ADALAT [Concomitant]
     Active Substance: NIFEDIPINE
     Indication: PRODUCT USED FOR UNKNOWN INDICATION
     Dosage: 40 MG MILLIGRAM(S), DAILY DOSE
     Route: 048
  27. SEPAMIT-R [Concomitant]
     Indication: PRODUCT USED FOR UNKNOWN INDICATION
     Dosage: 20 MG MILLIGRAM(S), DAILY DOSE
     Route: 048
  28. MEMARY [Concomitant]
     Active Substance: MEMANTINE HYDROCHLORIDE
     Indication: PRODUCT USED FOR UNKNOWN INDICATION
     Dosage: 5 MG MILLIGRAM(S), DAILY DOSE
     Route: 048
  29. VESICARE [Concomitant]
     Active Substance: SOLIFENACIN SUCCINATE
     Indication: PRODUCT USED FOR UNKNOWN INDICATION
     Dosage: 5 MG MILLIGRAM(S), DAILY DOSE
     Route: 048
  30. HANP [Concomitant]
     Active Substance: CARPERITIDE
     Dosage: 2000 MCG, DAILY DOSE
     Route: 041
     Dates: start: 20140615, end: 20140615
  31. GLUCOSE [Concomitant]
     Active Substance: DEXTROSE
     Indication: CARDIAC FAILURE
     Dosage: 160 ML MILLILITRE(S), DAILY DOSE
     Route: 041
     Dates: start: 20140614, end: 20140614
  32. GLUCOSE [Concomitant]
     Active Substance: DEXTROSE
     Dosage: 80 ML MILLILITRE(S), DAILY DOSE
     Route: 041
     Dates: start: 20140619, end: 20140621
  33. NICARDIPINE HYDROCHLORIDE. [Concomitant]
     Active Substance: NICARDIPINE HYDROCHLORIDE
     Indication: CARDIAC FAILURE
     Dosage: 2 DF DOSAGE FORM, DAILY DOSE
     Route: 041
     Dates: start: 20140614, end: 20140616
  34. MANNIGEN [Concomitant]
     Active Substance: MANNITOL
     Indication: PRODUCT USED FOR UNKNOWN INDICATION
     Dosage: 160 ML MILLILITRE(S), DAILY DOSE
     Route: 041
     Dates: start: 20140615, end: 20140615
  35. MANNIGEN [Concomitant]
     Active Substance: MANNITOL
     Dosage: 80 ML MILLILITRE(S), DAILY DOSE
     Route: 041
     Dates: start: 20140617, end: 20140621
  36. LASIX M [Concomitant]
     Active Substance: FUROSEMIDE
     Dosage: 260 MG MILLIGRAM(S), DAILY DOSE
     Route: 041
     Dates: start: 20140615, end: 20140615
  37. MANNITOL. [Concomitant]
     Active Substance: MANNITOL
     Indication: PRODUCT USED FOR UNKNOWN INDICATION
     Dosage: 80 ML MILLILITRE(S), DAILY DOSE
     Route: 041
     Dates: end: 20140621
  38. HANP [Concomitant]
     Active Substance: CARPERITIDE
     Dosage: 2000 MCG, DAILY DOSE
     Route: 041
     Dates: start: 20140617, end: 20140621
  39. GLUCOSE [Concomitant]
     Active Substance: DEXTROSE
     Dosage: 160 ML MILLILITRE(S), DAILY DOSE
     Route: 041
     Dates: start: 20140616, end: 20140616
  40. GLUCOSE [Concomitant]
     Active Substance: DEXTROSE
     Dosage: 160 ML MILLILITRE(S), DAILY DOSE
     Route: 041
     Dates: start: 20140618, end: 20140618

REACTIONS (4)
  - Anaemia [Recovering/Resolving]
  - Blood urea increased [Unknown]
  - Urine output decreased [Recovering/Resolving]
  - Blood creatinine increased [Unknown]

NARRATIVE: CASE EVENT DATE: 20140615
